FAERS Safety Report 9467511 (Version 1)
Quarter: 2013Q3

REPORT INFORMATION
  Report Type: Spontaneous
  Country: US (occurrence: None)
  Receive Date: 20130819
  Receipt Date: 20130819
  Transmission Date: 20140515
  Serious: No
  Sender: FDA-Public Use
  Company Number: None

PATIENT
  Age: 16 Year
  Sex: Male
  Weight: 95 kg

DRUGS (7)
  1. CYCLOPHOSPHAMIDE [Suspect]
  2. DOXORUBICIN HYDROCHLORIDE [Suspect]
  3. ETOPOSIDE (VP-16) [Suspect]
  4. IFOSFAMIDE [Suspect]
  5. IRINOTECAN [Suspect]
  6. TEMOZOLOMIDE [Suspect]
  7. VINCRISTINE SULFATE [Suspect]

REACTIONS (5)
  - Blood calcium decreased [None]
  - Blood albumin decreased [None]
  - Malnutrition [None]
  - Hypophagia [None]
  - Weight decreased [None]
